FAERS Safety Report 8514143-4 (Version None)
Quarter: 2012Q3

REPORT INFORMATION
  Report Type: 
  Country: None (occurrence: None)
  Receive Date: 20120717
  Receipt Date: 20120702
  Transmission Date: 20120928
  Serious: No
  Sender: FDA-Public Use
  Company Number: US-009507513-1202USA00333

PATIENT

DRUGS (3)
  1. DIAMOX [Concomitant]
  2. COSOPT [Suspect]
     Indication: GLAUCOMA
     Dosage: 1 DF, BID
     Route: 047
     Dates: end: 20090602
  3. LUMIGAN [Concomitant]
     Indication: GLAUCOMA
     Dosage: 1 DF, HS

REACTIONS (4)
  - PHOTOPHOBIA [None]
  - EYE BURNS [None]
  - OCULAR HYPERAEMIA [None]
  - EYE IRRITATION [None]
